FAERS Safety Report 16676174 (Version 2)
Quarter: 2019Q3

REPORT INFORMATION
  Report Type: Spontaneous
  Country: BR (occurrence: BR)
  Receive Date: 20190807
  Receipt Date: 20190809
  Transmission Date: 20191004
  Serious: Yes (Hospitalization, Disabling, Other)
  Sender: FDA-Public Use
  Company Number: BR-ASTRAZENECA-2019SF10946

PATIENT
  Age: 54 Year
  Sex: Male
  Weight: 106 kg

DRUGS (6)
  1. XIGDUO XR [Suspect]
     Active Substance: DAPAGLIFLOZIN PROPANEDIOL\METFORMIN HYDROCHLORIDE
     Indication: TYPE 2 DIABETES MELLITUS
     Dosage: 10/1000 MG, DAILY
     Route: 048
     Dates: start: 2017, end: 201907
  2. GLIFAGE [Concomitant]
     Active Substance: METFORMIN HYDROCHLORIDE
     Indication: TYPE 2 DIABETES MELLITUS
     Dosage: 1000 MG DAILY , TOGETHER WITH XIGDUO
     Route: 048
  3. INSULIN [Concomitant]
     Active Substance: INSULIN NOS
     Dosage: 0.15 U/KG
  4. CLAVULIN [Concomitant]
     Active Substance: AMOXICILLIN\CLAVULANATE POTASSIUM
  5. ALOGLIPTIN. [Concomitant]
     Active Substance: ALOGLIPTIN
     Dosage: 25MG
  6. AZUKON [Concomitant]
     Active Substance: GLICLAZIDE
     Indication: TYPE 2 DIABETES MELLITUS
     Dosage: 30 MG BID
     Route: 048

REACTIONS (6)
  - Toe amputation [Recovered/Resolved]
  - Cellulitis [Recovered/Resolved with Sequelae]
  - Osteomyelitis [Recovered/Resolved with Sequelae]
  - Localised infection [Recovered/Resolved with Sequelae]
  - Glycosylated haemoglobin increased [Recovered/Resolved]
  - Orthostatic hypotension [Recovered/Resolved]

NARRATIVE: CASE EVENT DATE: 201901
